FAERS Safety Report 5387758-2 (Version None)
Quarter: 2007Q3

REPORT INFORMATION
  Report Type: 
  Country: None (occurrence: None)
  Receive Date: 20070716
  Receipt Date: 20070712
  Transmission Date: 20080115
  Serious: Yes (Life-Threatening)
  Sender: FDA-Public Use
  Company Number: B0479139A

PATIENT
  Age: 47 Year
  Sex: Female

DRUGS (2)
  1. AUGMENTIN '125' [Suspect]
     Indication: GASTRIC ULCER
     Dosage: 1G PER DAY
     Route: 048
     Dates: start: 20070606, end: 20070606
  2. KLACID [Suspect]
     Indication: GASTRIC ULCER
     Dosage: 500MG PER DAY
     Route: 048
     Dates: start: 20070606, end: 20070606

REACTIONS (3)
  - ANAPHYLACTIC SHOCK [None]
  - HYPOTENSION [None]
  - URTICARIA [None]
